FAERS Safety Report 4821274-9 (Version None)
Quarter: 2005Q4

REPORT INFORMATION
  Report Type: 
  Country: None (occurrence: None)
  Receive Date: 20051104
  Receipt Date: 20051104
  Transmission Date: 20060501
  Serious: Yes (Other)
  Sender: FDA-Public Use
  Company Number: None

PATIENT
  Sex: Male
  Weight: 81.6475 kg

DRUGS (2)
  1. HALDOL [Suspect]
     Indication: SCHIZOPHRENIA
     Dosage: 15 MG DAILY
     Dates: start: 19860101
  2. HALDOL [Suspect]
     Indication: SCHIZOPHRENIA
     Dosage: 15 MG DAILY
     Dates: start: 19870101

REACTIONS (1)
  - DERMAL CYST [None]
